FAERS Safety Report 13656517 (Version 1)
Quarter: 2017Q2

REPORT INFORMATION
  Report Type: Spontaneous
  Country: US (occurrence: US)
  Receive Date: 20170615
  Receipt Date: 20170615
  Transmission Date: 20170830
  Serious: Yes (Other)
  Sender: FDA-Public Use
  Company Number: None

PATIENT
  Age: 47 Year
  Sex: Female
  Weight: 74.91 kg

DRUGS (5)
  1. MAGNESIUM [Concomitant]
     Active Substance: MAGNESIUM
  2. VITAMIN D [Concomitant]
     Active Substance: CHOLECALCIFEROL
  3. MIRVASO [Suspect]
     Active Substance: BRIMONIDINE TARTRATE
     Indication: ROSACEA
     Dosage: 5 PEA-SIZED DROPS, APPLIED TO SKIN
     Route: 061
     Dates: start: 20170528, end: 20170528
  4. BCOMPLEX VITAMIN [Concomitant]
  5. ZINC. [Concomitant]
     Active Substance: ZINC

REACTIONS (5)
  - Hyperaesthesia [None]
  - Tenderness [None]
  - Capillary fragility [None]
  - Burning sensation [None]
  - Erythema [None]

NARRATIVE: CASE EVENT DATE: 20170528
